FAERS Safety Report 16407053 (Version 3)
Quarter: 2019Q2

REPORT INFORMATION
  Report Type: Spontaneous
  Country: US (occurrence: US)
  Receive Date: 20190608
  Receipt Date: 20190613
  Transmission Date: 20190711
  Serious: Yes (Hospitalization, Other)
  Sender: FDA-Public Use
  Company Number: US-JNJFOC-20190606382

PATIENT
  Age: 28 Year
  Sex: Female

DRUGS (3)
  1. PARACETAMOL [Suspect]
     Active Substance: ACETAMINOPHEN
     Route: 048
  2. PARACETAMOL [Suspect]
     Active Substance: ACETAMINOPHEN
     Indication: SUICIDE ATTEMPT
     Route: 048
  3. ACETYLSALICYLIC ACID [Suspect]
     Active Substance: ASPIRIN
     Indication: SUICIDE ATTEMPT
     Route: 048

REACTIONS (12)
  - Maternal exposure during pregnancy [Unknown]
  - Hepatotoxicity [Unknown]
  - Metabolic acidosis [Recovered/Resolved]
  - Toxicity to various agents [Unknown]
  - Blood disorder [Unknown]
  - Intentional product misuse [Unknown]
  - Suicide attempt [Unknown]
  - Overdose [Unknown]
  - Respiratory alkalosis [Recovered/Resolved]
  - Hypoacusis [Unknown]
  - Premature delivery [Unknown]
  - Coagulation time prolonged [Recovered/Resolved]
